FAERS Safety Report 4408876-9 (Version None)
Quarter: 2004Q3

REPORT INFORMATION
  Report Type: 
  Country: None (occurrence: None)
  Receive Date: 20040727
  Receipt Date: 20040708
  Transmission Date: 20050211
  Serious: Yes (Hospitalization)
  Sender: FDA-Public Use
  Company Number: FR-GLAXOSMITHKLINE-B0338635A

PATIENT
  Age: 40 Year
  Sex: Male

DRUGS (7)
  1. COMBIVIR [Suspect]
     Indication: HIV INFECTION
     Dosage: 1TAB TWICE PER DAY
     Route: 048
     Dates: start: 20030401, end: 20040613
  2. KALETRA [Suspect]
     Indication: HIV INFECTION
     Dosage: 3UNIT TWICE PER DAY
     Route: 048
     Dates: start: 20030401, end: 20040613
  3. CLINDAMYCIN HCL [Concomitant]
     Dosage: 450MG THREE TIMES PER DAY
     Route: 048
     Dates: start: 20030401
  4. OSFOLATE [Concomitant]
     Route: 048
     Dates: start: 20030401
  5. MALOCIDE [Concomitant]
     Indication: TOXOPLASMOSIS
     Dosage: 50MG PER DAY
     Route: 048
     Dates: start: 20030401
  6. MINIRIN [Concomitant]
     Dosage: .1MG TWICE PER DAY
     Route: 048
  7. KALEORID [Concomitant]
     Indication: HYPOKALAEMIA
     Route: 048

REACTIONS (18)
  - BLOOD CREATININE INCREASED [None]
  - BLOOD LACTIC ACID INCREASED [None]
  - COMA [None]
  - DEHYDRATION [None]
  - DIABETIC KETOACIDOTIC HYPERGLYCAEMIC COMA [None]
  - HEPATIC STEATOSIS [None]
  - HYPERAMYLASAEMIA [None]
  - HYPERGLYCAEMIA [None]
  - HYPERLACTACIDAEMIA [None]
  - HYPERTRIGLYCERIDAEMIA [None]
  - KETOACIDOSIS [None]
  - LIPASE INCREASED [None]
  - PANCREATIC NECROSIS [None]
  - PANCREATITIS [None]
  - PANCREATITIS ACUTE [None]
  - POLYDIPSIA [None]
  - PYREXIA [None]
  - RENAL FAILURE ACUTE [None]
